FAERS Safety Report 11330664 (Version 1)
Quarter: 2015Q3

REPORT INFORMATION
  Report Type: Spontaneous
  Country: US (occurrence: None)
  Receive Date: 20150730
  Receipt Date: 20150730
  Transmission Date: 20151125
  Serious: No
  Sender: FDA-Public Use
  Company Number: None

PATIENT
  Age: 45 Year
  Sex: Female
  Weight: 81.65 kg

DRUGS (1)
  1. OTEZLA [Suspect]
     Active Substance: APREMILAST
     Indication: PSORIATIC ARTHROPATHY
     Route: 048
     Dates: start: 20150623, end: 20150728

REACTIONS (17)
  - Headache [None]
  - Myalgia [None]
  - Musculoskeletal stiffness [None]
  - Vomiting [None]
  - Flatulence [None]
  - Pain [None]
  - Pruritus [None]
  - Skin lesion [None]
  - Nausea [None]
  - Fluid retention [None]
  - Pain in extremity [None]
  - Joint swelling [None]
  - Arthralgia [None]
  - Upper-airway cough syndrome [None]
  - Pyrexia [None]
  - Back pain [None]
  - Diarrhoea [None]

NARRATIVE: CASE EVENT DATE: 20150729
